FAERS Safety Report 10260740 (Version 4)
Quarter: 2014Q4

REPORT INFORMATION
  Report Type: Spontaneous
  Country: US (occurrence: US)
  Receive Date: 20140626
  Receipt Date: 20141118
  Transmission Date: 20150528
  Serious: Yes (Other)
  Sender: FDA-Public Use
  Company Number: US-BIOGENIDEC-2014BI060980

PATIENT
  Age: 30 Year
  Sex: Male

DRUGS (4)
  1. TYSABRI [Suspect]
     Active Substance: NATALIZUMAB
     Indication: RELAPSING-REMITTING MULTIPLE SCLEROSIS
     Route: 042
     Dates: start: 20121127
  2. GABAPENTIN. [Concomitant]
     Active Substance: GABAPENTIN
  3. NORTRIPTYLINE [Concomitant]
     Active Substance: NORTRIPTYLINE
  4. TYSABRI [Suspect]
     Active Substance: NATALIZUMAB
     Indication: RELAPSING-REMITTING MULTIPLE SCLEROSIS
     Route: 042
     Dates: start: 20090112, end: 20120203

REACTIONS (4)
  - Generalised tonic-clonic seizure [Recovered/Resolved]
  - Staphylococcal infection [Unknown]
  - Seizure [Unknown]
  - Substance abuse [Unknown]

NARRATIVE: CASE EVENT DATE: 20140612
